FAERS Safety Report 21075740 (Version 1)
Quarter: 2022Q3

REPORT INFORMATION
  Report Type: Spontaneous
  Country: US (occurrence: US)
  Receive Date: 20220713
  Receipt Date: 20220713
  Transmission Date: 20221026
  Serious: No
  Sender: FDA-Public Use
  Company Number: US-TARO PHARMACEUTICALS USA INC.-2022TAR00536

PATIENT

DRUGS (4)
  1. CLOBETASOL [Suspect]
     Active Substance: CLOBETASOL
     Indication: Erythema
     Dosage: UNK, 1/WEEK, PRIOR TO INITIAL REPORT
     Route: 061
     Dates: start: 2022
  2. CLOBETASOL [Suspect]
     Active Substance: CLOBETASOL
     Indication: Pruritus
     Dosage: UNK, 3/WEEK,FOLLOWED BY ONCE WEEKLY, SCALP
     Route: 061
     Dates: start: 202202
  3. CLOBETASOL [Suspect]
     Active Substance: CLOBETASOL
     Dosage: UNK, 1/WEEK,FOLLOWED BY ONCE WEEKLY, SCALP
     Route: 061
     Dates: start: 202202
  4. CLOBETASOL [Suspect]
     Active Substance: CLOBETASOL
     Dosage: UNK, 4X/WEEK
     Route: 061
     Dates: start: 202202

REACTIONS (4)
  - Off label use [Unknown]
  - Drug ineffective [Unknown]
  - Intentional product misuse [Unknown]
  - Incorrect product administration duration [Unknown]

NARRATIVE: CASE EVENT DATE: 20220201
